FAERS Safety Report 8951174 (Version 1)
Quarter: 2012Q4

REPORT INFORMATION
  Report Type: 
  Country: US (occurrence: US)
  Receive Date: 20121207
  Receipt Date: 20121207
  Transmission Date: 20130627
  Serious: Yes (Other)
  Sender: FDA-Public Use
  Company Number: US-PFIZER INC-2012308260

PATIENT
  Age: 73 Year
  Sex: Male
  Weight: 81.63 kg

DRUGS (4)
  1. CHANTIX [Suspect]
     Indication: SMOKING CESSATION THERAPY
     Dosage: 0.5 mg,daily
     Route: 048
     Dates: start: 20121120
  2. CHANTIX [Suspect]
     Dosage: 0.5 mg, 2x/day
     Route: 048
     Dates: end: 20121127
  3. AGGRENOX [Concomitant]
     Dosage: UNK,daily
  4. VITAMIN B12 [Concomitant]
     Dosage: UNK,daily

REACTIONS (2)
  - Spinal disorder [Recovering/Resolving]
  - Abnormal dreams [Recovered/Resolved]
